FAERS Safety Report 10542199 (Version 2)
Quarter: 2018Q4

REPORT INFORMATION
  Report Type: Report from Study
  Country: BR (occurrence: BR)
  Receive Date: 20141024
  Receipt Date: 20181119
  Transmission Date: 20190204
  Serious: Yes (Death, Hospitalization, Other)
  Sender: FDA-Public Use
  Company Number: PHHY2014BR139270

PATIENT
  Sex: Female
  Weight: 45 kg

DRUGS (5)
  1. CARVEDILOL. [Concomitant]
     Active Substance: CARVEDILOL
     Indication: CARDIAC DISORDER
     Dosage: 2 DF, QD
     Route: 065
  2. ACLASTA [Suspect]
     Active Substance: ZOLEDRONIC ACID
     Indication: OSTEOPOROSIS
     Dosage: 1 DF, Q12MO
     Route: 042
     Dates: start: 2012
  3. ESOMEPRAZOL//ESOMEPRAZOLE [Concomitant]
     Indication: GASTROINTESTINAL DISORDER
     Dosage: 1 DF, QD
     Route: 065
  4. ACLASTA [Suspect]
     Active Substance: ZOLEDRONIC ACID
     Dosage: 1 DF, Q12MO
     Route: 042
     Dates: start: 2013
  5. EFORTIL [Concomitant]
     Indication: BLOOD PRESSURE ABNORMAL
     Dosage: 20 DF
     Route: 065

REACTIONS (10)
  - Pancreatitis acute [Fatal]
  - Hypotension [Unknown]
  - Blood urea increased [Unknown]
  - Somnolence [Unknown]
  - Cardiac failure [Unknown]
  - Pyrexia [Unknown]
  - Malaise [Unknown]
  - Pneumonia [Fatal]
  - Cough [Fatal]
  - Bronchiectasis [Unknown]

NARRATIVE: CASE EVENT DATE: 2014
